FAERS Safety Report 5747338-3 (Version None)
Quarter: 2008Q2

REPORT INFORMATION
  Report Type: 
  Country: None (occurrence: None)
  Receive Date: 20080523
  Receipt Date: 20080512
  Transmission Date: 20081010
  Serious: Yes (Hospitalization)
  Sender: FDA-Public Use
  Company Number: GB-JNJFOC-20080200442

PATIENT
  Sex: Female
  Weight: 2.84 kg

DRUGS (15)
  1. CONCERTA [Suspect]
     Indication: DRUG EXPOSURE DURING PREGNANCY
  2. DULOXETINE [Suspect]
  3. DULOXETINE [Suspect]
     Indication: DRUG EXPOSURE DURING PREGNANCY
  4. BECLOMETHASONE DIPROPIONATE [Concomitant]
     Dosage: TWO PUFFS TWICE A DAY.
  5. ALBUTEROL [Concomitant]
  6. ALBUTEROL [Concomitant]
     Dosage: TWO PUFFS FOUR TIMES A DAY.
  7. IBUPROFEN [Concomitant]
  8. ACETAMINOPHEN [Concomitant]
     Dosage: PRESCRIPTIONS ISSUED BETWEEN 23-11-07 AND 07-01-08. 50 TABLETS AT A TIME.
  9. CODEINE SUL TAB [Concomitant]
     Dosage: 30-60MG FOUR TIMES IN ONE DAY.
  10. CLEXANE [Concomitant]
  11. NULYTELY [Concomitant]
     Indication: CONSTIPATION
  12. ORAMORPH SR [Concomitant]
  13. NICOTINE [Concomitant]
  14. CYMBALTA [Concomitant]
  15. PEPTAC [Concomitant]
     Dosage: DOSE 10ML TO 20ML AT NIGHT.

REACTIONS (1)
  - PREMATURE BABY [None]
